FAERS Safety Report 4365441-X (Version None)
Quarter: 2004Q2

REPORT INFORMATION
  Report Type: 
  Country: None (occurrence: None)
  Receive Date: 20040520
  Receipt Date: 20040511
  Transmission Date: 20050107
  Serious: No
  Sender: FDA-Public Use
  Company Number: 2004UW09703

PATIENT
  Age: 48 Year
  Sex: Female
  Weight: 63.5036 kg

DRUGS (2)
  1. TOPROL-XL [Suspect]
     Indication: HYPERTENSION
     Dosage: 25 MG PO
     Route: 048
     Dates: start: 20040415
  2. METOPROLOL IV [Concomitant]

REACTIONS (6)
  - BILIARY DILATATION [None]
  - BRONCHOSTENOSIS [None]
  - INTESTINAL DILATATION [None]
  - PERICARDIAL EFFUSION [None]
  - RASH [None]
  - SWOLLEN TONGUE [None]
